FAERS Safety Report 23776997 (Version 1)
Quarter: 2024Q2

REPORT INFORMATION
  Report Type: Spontaneous
  Country: US (occurrence: US)
  Receive Date: 20240424
  Receipt Date: 20240424
  Transmission Date: 20240717
  Serious: No
  Sender: FDA-Public Use
  Company Number: US-OPELLA-2024OHG013470

PATIENT
  Sex: Female

DRUGS (1)
  1. SELENIUM SULFIDE [Suspect]
     Active Substance: SELENIUM SULFIDE
     Indication: Product used for unknown indication

REACTIONS (2)
  - Trichorrhexis [Unknown]
  - Hair injury [Unknown]
